FAERS Safety Report 18897972 (Version 1)
Quarter: 2021Q1

REPORT INFORMATION
  Report Type: Spontaneous
  Country: US (occurrence: US)
  Receive Date: 20210212
  Receipt Date: 20210212
  Transmission Date: 20210420
  Serious: Yes (Disabling)
  Sender: FDA-Public Use
  Company Number: None

PATIENT
  Age: 18 Year
  Sex: Female
  Weight: 63.5 kg

DRUGS (10)
  1. VITAMIN D3 [Concomitant]
     Active Substance: CHOLECALCIFEROL
  2. GABAPENTIN. [Concomitant]
     Active Substance: GABAPENTIN
  3. MELATONIN [Concomitant]
     Active Substance: MELATONIN
  4. ORILISSA [Concomitant]
     Active Substance: ELAGOLIX SODIUM
  5. NEXPLANON [Suspect]
     Active Substance: ETONOGESTREL
  6. NEXPLANON [Concomitant]
     Active Substance: ETONOGESTREL
  7. AMITRIPTYLINE [Concomitant]
     Active Substance: AMITRIPTYLINE
  8. DULOXETINE. [Concomitant]
     Active Substance: DULOXETINE
  9. PROPRANOLOL [Concomitant]
     Active Substance: PROPRANOLOL HYDROCHLORIDE
  10. CALCIUM [Concomitant]
     Active Substance: CALCIUM

REACTIONS (5)
  - Peripheral swelling [None]
  - Skin discolouration [None]
  - Pain of skin [None]
  - Device dislocation [None]
  - Contusion [None]

NARRATIVE: CASE EVENT DATE: 20180118
